FAERS Safety Report 22796612 (Version 3)
Quarter: 2024Q2

REPORT INFORMATION
  Report Type: Spontaneous
  Country: NL (occurrence: NL)
  Receive Date: 20230808
  Receipt Date: 20240528
  Transmission Date: 20240716
  Serious: Yes (Death, Life-Threatening, Hospitalization, Other)
  Sender: FDA-Public Use
  Company Number: NL-SANDOZ-SDZ2023NL009965

PATIENT
  Age: 55 Year
  Sex: Female
  Weight: 125 kg

DRUGS (18)
  1. ACETAMINOPHEN [Interacting]
     Active Substance: ACETAMINOPHEN
     Indication: Product used for unknown indication
     Dosage: 20 TABLETS OF ACETAMINOPHEN 500 MG (10 G, OR 80 MG/KG)
     Route: 048
  2. ACETAMINOPHEN [Interacting]
     Active Substance: ACETAMINOPHEN
     Indication: Suicide attempt
     Dosage: 20 DF, (10 G, OR 80 MG/KG)
     Route: 042
  3. HYDROCORTISONE [Concomitant]
     Active Substance: HYDROCORTISONE
     Indication: Vasoplegia syndrome
     Dosage: UNK
     Route: 065
  4. NOREPINEPHRINE\NOREPINEPHRINE BITARTRATE [Concomitant]
     Active Substance: NOREPINEPHRINE\NOREPINEPHRINE BITARTRATE
     Indication: Vasoplegia syndrome
     Dosage: UNK, 0 TO 1.2  G/KG/MIN (INCREASING RAPIDELY)
     Route: 065
  5. NOREPINEPHRINE\NOREPINEPHRINE BITARTRATE [Concomitant]
     Active Substance: NOREPINEPHRINE\NOREPINEPHRINE BITARTRATE
     Dosage: UNK, 0.5  G/KG/MIN (15 MIN AFTER FIRST INJ) FOR 6 H
     Route: 065
  6. NOREPINEPHRINE\NOREPINEPHRINE BITARTRATE [Concomitant]
     Active Substance: NOREPINEPHRINE\NOREPINEPHRINE BITARTRATE
     Dosage: UNK, 0.25  G/KG/MIN. AFTER SECOND 2 MG/KG
     Route: 065
  7. ACTIVATED CHARCOAL [Concomitant]
     Active Substance: ACTIVATED CHARCOAL
     Indication: Product used for unknown indication
     Dosage: UNK
     Route: 065
  8. RYBELSUS [Interacting]
     Active Substance: SEMAGLUTIDE
     Indication: Product used for unknown indication
     Dosage: 30 DF, 30 TABLETS (420 MG OR 3.4 MG/ KG)
     Route: 048
  9. RYBELSUS [Interacting]
     Active Substance: SEMAGLUTIDE
     Dosage: 30 DF
     Route: 042
  10. SIMVASTATIN [Interacting]
     Active Substance: SIMVASTATIN
     Indication: Suicide attempt
     Dosage: 40 MG (1520 MG, OR 12 MG/KG)
     Route: 048
  11. SIMVASTATIN [Interacting]
     Active Substance: SIMVASTATIN
     Indication: Product used for unknown indication
     Dosage: 38 TABLETS OF 40 MG (1520 MG OR 12 MG/KG)
     Route: 048
  12. VASOPRESSIN [Concomitant]
     Active Substance: VASOPRESSIN
     Indication: Vasoplegia syndrome
     Dosage: 0.03 IE/MIN
     Route: 065
  13. METHYLENE BLUE [Suspect]
     Active Substance: METHYLENE BLUE
     Indication: Vasoplegia syndrome
     Dosage: 250 MG, 2 MG/KG
     Route: 042
  14. METHYLENE BLUE [Suspect]
     Active Substance: METHYLENE BLUE
     Dosage: 2 MG/KG, 6 HOURS AFTER FIRST ONE
     Route: 042
  15. METFORMIN [Interacting]
     Active Substance: METFORMIN HYDROCHLORIDE
     Indication: Suicide attempt
     Dosage: 165 TABLETS OF 500 MG (82.5 G, OR 660 MG/KG)
     Route: 048
  16. METFORMIN [Interacting]
     Active Substance: METFORMIN HYDROCHLORIDE
     Indication: Product used for unknown indication
     Dosage: 165 DF
     Route: 042
  17. SEMAGLUTIDE [Interacting]
     Active Substance: SEMAGLUTIDE
     Indication: Suicide attempt
     Dosage: 0 DOSAGE FORM
     Route: 042
  18. SEMAGLUTIDE [Interacting]
     Active Substance: SEMAGLUTIDE
     Indication: Product used for unknown indication
     Dosage: 30 TABLETS OF SEMAGLUTIDE 14 MG (420 MG OR 3.4 MG/ KG)
     Route: 048

REACTIONS (13)
  - Hepatic necrosis [Fatal]
  - Skin discolouration [Unknown]
  - Intentional overdose [Fatal]
  - Hypoglycaemia [Unknown]
  - Drug abuse [Unknown]
  - Chromaturia [Unknown]
  - Toxicity to various agents [Fatal]
  - Lactic acidosis [Fatal]
  - Faeces discoloured [Unknown]
  - Hepatic ischaemia [Unknown]
  - Condition aggravated [Unknown]
  - Distributive shock [Fatal]
  - Completed suicide [Fatal]
